FAERS Safety Report 10481118 (Version 1)
Quarter: 2014Q3

REPORT INFORMATION
  Report Type: Spontaneous
  Country: US (occurrence: US)
  Receive Date: 20140929
  Receipt Date: 20140929
  Transmission Date: 20150326
  Serious: Yes (Life-Threatening, Hospitalization)
  Sender: FDA-Public Use
  Company Number: US-ASTRAZENECA-2014SE72241

PATIENT
  Sex: Male

DRUGS (2)
  1. CARBAMAZEPINE. [Suspect]
     Active Substance: CARBAMAZEPINE
     Route: 065
  2. QUETIAPINE [Suspect]
     Active Substance: QUETIAPINE
     Dosage: UNKNOWN
     Route: 048

REACTIONS (2)
  - Drug reaction with eosinophilia and systemic symptoms [Unknown]
  - Drug hypersensitivity [Unknown]
